FAERS Safety Report 4403758-0 (Version None)
Quarter: 2004Q3

REPORT INFORMATION
  Report Type: 
  Country: None (occurrence: None)
  Receive Date: 20040719
  Receipt Date: 20040706
  Transmission Date: 20050211
  Serious: Yes (Hospitalization)
  Sender: FDA-Public Use
  Company Number: 04H-163-0264579-00

PATIENT
  Age: 57 Year
  Sex: Female

DRUGS (4)
  1. MARCAINE [Suspect]
     Indication: ANALGESIC EFFECT
     Dosage: 6 CC, ONCE, INTRA-ARTICULAR
     Route: 014
     Dates: start: 20040615, end: 20040615
  2. PROPOFOL [Concomitant]
  3. MIDAZOLAM HYDROCHLORIDE [Concomitant]
  4. FENTANYL [Concomitant]

REACTIONS (4)
  - DRUG HYPERSENSITIVITY [None]
  - NAUSEA [None]
  - RESTLESSNESS [None]
  - VOMITING [None]
